FAERS Safety Report 11708428 (Version 1)
Quarter: 2020Q3

REPORT INFORMATION
  Report Type: Spontaneous
  Country: GB (occurrence: GB)
  Receive Date: 20151107
  Receipt Date: 20151107
  Transmission Date: 20201104
  Serious: Yes (Other)
  Sender: FDA-Public Use
  Company Number: GB-CIPLA LTD.-2015GB08397

PATIENT

DRUGS (3)
  1. CARBOPLATIN. [Suspect]
     Active Substance: CARBOPLATIN
     Indication: CERVIX CARCINOMA
     Dosage: AUC OF 5  EVERY 3 WEEKS FOR A MAXIMUM OF SIX CYCLES
  2. PACLITAXEL. [Suspect]
     Active Substance: PACLITAXEL
     Indication: CERVIX CARCINOMA
     Dosage: 175 MG/M2,  EVERY 3 WEEKS FOR A MAXIMUM OF SIX CYCLES
  3. CEDIRANIB. [Suspect]
     Active Substance: CEDIRANIB
     Indication: CERVIX CARCINOMA
     Dosage: 20 MG, UNK
     Route: 048

REACTIONS (1)
  - Blood potassium increased [Unknown]
